FAERS Safety Report 12092616 (Version 4)
Quarter: 2016Q2

REPORT INFORMATION
  Report Type: Spontaneous
  Country: GB (occurrence: GB)
  Receive Date: 20160219
  Receipt Date: 20160503
  Transmission Date: 20160815
  Serious: Yes (Other)
  Sender: FDA-Public Use
  Company Number: GB-AMGEN-GBRSP2016004507

PATIENT
  Age: 51 Year
  Sex: Female

DRUGS (10)
  1. APREPITANT. [Concomitant]
     Active Substance: APREPITANT
     Dosage: UNK
  2. EPIRUBICIN [Concomitant]
     Active Substance: EPIRUBICIN
     Dosage: UNK,
  3. HYDROCORTISONE. [Concomitant]
     Active Substance: HYDROCORTISONE
     Dosage: UNK
  4. FLUOROURACIL. [Concomitant]
     Active Substance: FLUOROURACIL
     Dosage: UNK, CYCLE 2
     Dates: start: 201602
  5. CYCLOPHOSPHAMIDE. [Concomitant]
     Active Substance: CYCLOPHOSPHAMIDE
     Dosage: UNK, CYCLE 2
     Dates: start: 201602
  6. NEULASTA [Suspect]
     Active Substance: PEGFILGRASTIM
     Indication: PRODUCT USED FOR UNKNOWN INDICATION
     Dosage: UNK
     Route: 065
  7. NEULASTA [Suspect]
     Active Substance: PEGFILGRASTIM
     Dosage: UNK, CYCLE 2
     Route: 065
     Dates: start: 201602
  8. FLUOROURACIL. [Concomitant]
     Active Substance: FLUOROURACIL
     Dosage: UNK
  9. EPIRUBICIN [Concomitant]
     Active Substance: EPIRUBICIN
     Dosage: UNK, CYCLE 2UNK
     Dates: start: 201602
  10. CYCLOPHOSPHAMIDE. [Concomitant]
     Active Substance: CYCLOPHOSPHAMIDE

REACTIONS (22)
  - Body temperature increased [Unknown]
  - Paraesthesia [Unknown]
  - Dry skin [Unknown]
  - Pollakiuria [Unknown]
  - Alanine aminotransferase increased [Unknown]
  - Thirst [Unknown]
  - Neutropenia [Unknown]
  - Skin haemorrhage [Unknown]
  - Dyspepsia [Unknown]
  - Dyspnoea exertional [Unknown]
  - Vomiting [Unknown]
  - Contusion [Unknown]
  - Limb discomfort [Unknown]
  - Application site pain [Unknown]
  - Phlebitis [Unknown]
  - Fatigue [Unknown]
  - Poor venous access [Unknown]
  - Insomnia [Unknown]
  - Neuropathy peripheral [Unknown]
  - Nausea [Not Recovered/Not Resolved]
  - Abdominal discomfort [Unknown]
  - Headache [Unknown]

NARRATIVE: CASE EVENT DATE: 20160112
